FAERS Safety Report 13466370 (Version 1)
Quarter: 2017Q2

REPORT INFORMATION
  Report Type: Spontaneous
  Country: US (occurrence: US)
  Receive Date: 20170421
  Receipt Date: 20170421
  Transmission Date: 20170830
  Serious: Yes (Death)
  Sender: FDA-Public Use
  Company Number: US-TAIHO ONCOLOGY INC-EU-2017-00618

PATIENT
  Age: 73 Year
  Sex: Male
  Weight: 59.47 kg

DRUGS (4)
  1. DRONABINOL. [Concomitant]
     Active Substance: DRONABINOL
     Indication: NAUSEA
     Dates: start: 20161027, end: 20170405
  2. HYDROCHLOROTHIAZIDE/TRIAMTERENE [Concomitant]
     Indication: HYPERTENSION
     Dosage: 37.5-25MG
     Dates: start: 20161027, end: 20170405
  3. ZOLOFT [Concomitant]
     Active Substance: SERTRALINE HYDROCHLORIDE
     Indication: DEPRESSION
     Dates: start: 20161027, end: 20170405
  4. LONSURF [Suspect]
     Active Substance: TIPIRACIL HYDROCHLORIDE\TRIFLURIDINE
     Indication: RECTAL CANCER
     Dosage: CYCLE 3
     Route: 048
     Dates: start: 20170206, end: 20170306

REACTIONS (1)
  - Death [Fatal]

NARRATIVE: CASE EVENT DATE: 20170406
